FAERS Safety Report 4781111-8 (Version None)
Quarter: 2005Q3

REPORT INFORMATION
  Report Type: 
  Country: None (occurrence: None)
  Receive Date: 20050926
  Receipt Date: 20050813
  Transmission Date: 20060218
  Serious: Yes (Other)
  Sender: FDA-Public Use
  Company Number: 2005US000757

PATIENT
  Age: 35 Year
  Sex: Male

DRUGS (15)
  1. AMBISOME [Suspect]
     Indication: MUCORMYCOSIS
     Dosage: 6.00 MG/KG, UID/QD
     Dates: start: 20050509, end: 20050518
  2. AMBISOME [Suspect]
     Indication: MUCORMYCOSIS
     Dosage: 6.00 MG/KG, UID/QD
     Dates: start: 20050525
  3. POSACONAZOLE (SCH 56592) (POSACONAZOLE) [Suspect]
     Indication: FUNGAL INFECTION
     Dosage: SEE IMAGE
     Route: 048
     Dates: start: 20050513, end: 20050518
  4. POSACONAZOLE (SCH 56592) (POSACONAZOLE) [Suspect]
     Indication: FUNGAL INFECTION
     Dosage: SEE IMAGE
     Route: 048
     Dates: start: 20050531
  5. TRAZODONE HCL [Suspect]
     Indication: DEPRESSION
     Dosage: 100.00 MG
     Dates: start: 20050515, end: 20050515
  6. FLUOXETINE [Suspect]
     Indication: DEPRESSION
     Dosage: 20.00 MG, UID/QD
     Dates: start: 20050426, end: 20050518
  7. ACETAMINOPHEN [Suspect]
     Indication: PYREXIA
     Dosage: PRN, IV NOS
     Route: 042
     Dates: start: 20050503, end: 20050518
  8. GLIVEC(IMATINIB MESILATE) [Suspect]
     Dosage: UNK MG
     Dates: start: 20050504, end: 20050518
  9. OMEPRAZOLE [Suspect]
     Dosage: 20.00 MG
     Dates: start: 20050501
  10. VORICONAZOLE (VORICONAZOLE) [Concomitant]
  11. CASPOFUNGIN (CASPOFUNGIN) [Concomitant]
  12. VINCRISTINE (VINCRHISTINE) [Concomitant]
  13. DAUNORUBICIN (DAUNORUBICIN) [Concomitant]
  14. CYTARABINE [Concomitant]
  15. METHOTREXATE [Concomitant]

REACTIONS (8)
  - ABDOMINAL PAIN UPPER [None]
  - DRUG INTERACTION [None]
  - HEPATITIS TOXIC [None]
  - LUNG INFILTRATION [None]
  - MITRAL VALVE INCOMPETENCE [None]
  - MUCORMYCOSIS [None]
  - PLEURAL EFFUSION [None]
  - VIRAL INFECTION [None]
